FAERS Safety Report 8513749 (Version 2)
Quarter: 2013Q4

REPORT INFORMATION
  Report Type: Report from Study
  Country: FR (occurrence: FR)
  Receive Date: 20120416
  Receipt Date: 20131001
  Transmission Date: 20140711
  Serious: Yes (Hospitalization)
  Sender: FDA-Public Use
  Company Number: FR-BRISTOL-MYERS SQUIBB COMPANY-16517419

PATIENT
  Age: 66 Year
  Sex: Female

DRUGS (7)
  1. PROPRANOLOL [Concomitant]
     Route: 048
  2. LASILIX [Concomitant]
     Route: 048
  3. ALDACTONE [Concomitant]
     Indication: HYPERTENSION
  4. CETUXIMAB [Suspect]
     Indication: SQUAMOUS CELL CARCINOMA OF HEAD AND NECK
     Dosage: 7FEB2012-7FEB2012(400MG)?UNK-28FEB2012:385MG?RECENT DOSE ON 28FEB2012?ALSO TAKEN VIA IV
     Route: 041
     Dates: start: 20120207, end: 20120228
  5. CISPLATIN FOR INJ [Suspect]
     Indication: SQUAMOUS CELL CARCINOMA OF HEAD AND NECK
     Dosage: LAST DOSE ON 20DEC2011
     Route: 041
     Dates: start: 20111220, end: 20111220
  6. DOCETAXEL [Suspect]
     Indication: SQUAMOUS CELL CARCINOMA OF HEAD AND NECK
     Dosage: DOCETAXEL IV INFUSION?LAST DOSE ON 20DEC11
     Route: 041
     Dates: start: 20111220, end: 20111220
  7. 5-FLUOROURACIL [Suspect]
     Indication: SQUAMOUS CELL CARCINOMA OF HEAD AND NECK
     Dosage: LAST DOSE ON 25DEC11? 5-FLUOROURACIL INFUSION
     Route: 042
     Dates: start: 20111220, end: 20111225

REACTIONS (2)
  - Melaena [Recovered/Resolved]
  - Anaemia [Recovering/Resolving]
